FAERS Safety Report 9881891 (Version 1)
Quarter: 2014Q1

REPORT INFORMATION
  Report Type: Spontaneous
  Country: US (occurrence: US)
  Receive Date: 20140207
  Receipt Date: 20140207
  Transmission Date: 20141002
  Serious: Yes (Other)
  Sender: FDA-Public Use
  Company Number: US-PFIZER INC-2014026182

PATIENT
  Sex: 0

DRUGS (1)
  1. CHAPSTICK LIP BALM [Suspect]
     Indication: LIP INJURY
     Dosage: UNK

REACTIONS (2)
  - Angina pectoris [Unknown]
  - Drug ineffective for unapproved indication [Unknown]
